FAERS Safety Report 17745746 (Version 3)
Quarter: 2020Q3

REPORT INFORMATION
  Report Type: Spontaneous
  Country: US (occurrence: US)
  Receive Date: 20200505
  Receipt Date: 20200702
  Transmission Date: 20201102
  Serious: Yes (Death, Hospitalization, Other)
  Sender: FDA-Public Use
  Company Number: US-PFIZER INC-2020176322

PATIENT
  Age: 17 Year
  Sex: Male
  Weight: 73 kg

DRUGS (4)
  1. ZOLOFT [Suspect]
     Active Substance: SERTRALINE HYDROCHLORIDE
     Indication: ANXIETY
     Dosage: UNK
     Dates: start: 201912
  2. SERTRALINE HCL [Suspect]
     Active Substance: SERTRALINE HYDROCHLORIDE
     Indication: ANXIETY
     Dosage: 12.5 MG, 1X/DAY
  3. SERTRALINE HCL [Suspect]
     Active Substance: SERTRALINE HYDROCHLORIDE
     Dosage: 50 MG, 1X/DAY
     Dates: start: 20191228
  4. SERTRALINE HCL [Suspect]
     Active Substance: SERTRALINE HYDROCHLORIDE
     Dosage: 25 MG, 1X/DAY

REACTIONS (5)
  - Hypomania [Unknown]
  - Agitation [Unknown]
  - Off label use [Unknown]
  - Product use in unapproved indication [Unknown]
  - Completed suicide [Fatal]

NARRATIVE: CASE EVENT DATE: 202001
